FAERS Safety Report 5489477-0 (Version None)
Quarter: 2007Q4

REPORT INFORMATION
  Report Type: 
  Country: None (occurrence: None)
  Receive Date: 20071009
  Receipt Date: 20070515
  Transmission Date: 20080405
  Serious: Yes (Other)
  Sender: FDA-Public Use
  Company Number: 2007US001103

PATIENT
  Age: 4 Month
  Sex: Male
  Weight: 6.6 kg

DRUGS (7)
  1. AMBISOME [Suspect]
     Indication: OFF LABEL USE
     Dates: start: 20070416
  2. NOXAFIL [Suspect]
     Indication: INFECTION
     Dosage: 180 MG, TID,; 30 MG, TID,
     Dates: start: 20070416
  3. NOXAFIL [Suspect]
     Indication: INFECTION
     Dosage: 180 MG, TID,; 30 MG, TID,
     Dates: start: 20070425
  4. CYCLOSPORINE [Suspect]
     Indication: DRUG USE FOR UNKNOWN INDICATION
     Dosage: UID/QD,; UID/QD
     Dates: end: 20070416
  5. CYCLOSPORINE [Suspect]
     Indication: DRUG USE FOR UNKNOWN INDICATION
     Dosage: UID/QD,; UID/QD
     Dates: start: 20070425
  6. ETOPOSIDE [Concomitant]
  7. DEXAMETHASONE [Concomitant]

REACTIONS (1)
  - HEPATIC ENZYME INCREASED [None]
